FAERS Safety Report 5578168-3 (Version None)
Quarter: 2007Q4

REPORT INFORMATION
  Report Type: 
  Country: None (occurrence: None)
  Receive Date: 20071231
  Receipt Date: 20071220
  Transmission Date: 20080405
  Serious: Yes (Other)
  Sender: FDA-Public Use
  Company Number: US-PFIZER INC-2007107336

PATIENT
  Sex: Female
  Weight: 107.5 kg

DRUGS (7)
  1. XANAX [Suspect]
     Indication: PANIC DISORDER
  2. XANAX [Suspect]
     Indication: ANXIETY DISORDER
  3. AVANDIA [Concomitant]
  4. TRAMADOL HCL [Concomitant]
  5. DYAZIDE [Concomitant]
  6. CARDIZEM [Concomitant]
  7. SINGULAIR [Concomitant]

REACTIONS (15)
  - ANGINA PECTORIS [None]
  - ANOREXIA [None]
  - BURNING SENSATION [None]
  - DRUG WITHDRAWAL SYNDROME [None]
  - DYSPHEMIA [None]
  - HEAD DISCOMFORT [None]
  - HEADACHE [None]
  - HYPERHIDROSIS [None]
  - INSOMNIA [None]
  - MEMORY IMPAIRMENT [None]
  - MUSCULAR WEAKNESS [None]
  - NERVOUSNESS [None]
  - PARAESTHESIA [None]
  - PARANOIA [None]
  - PSYCHOMOTOR HYPERACTIVITY [None]
